FAERS Safety Report 4919661-3 (Version None)
Quarter: 2006Q1

REPORT INFORMATION
  Report Type: 
  Country: None (occurrence: None)
  Receive Date: 20060216
  Receipt Date: 20050215
  Transmission Date: 20060701
  Serious: Yes (Death, Hospitalization)
  Sender: FDA-Public Use
  Company Number: HQWYE756310FEB06

PATIENT
  Sex: Female

DRUGS (10)
  1. PROTIUM (PANTOPRAZOLE) [Suspect]
  2. ASPIRIN [Suspect]
     Dosage: 75 MG 1X 1 PER DAY
  3. CALCICHEW-D3 (CACLIUM CARBONATE/COLECALCIFEROL, ) [Suspect]
  4. CANESTEN (CLOTRIMAZOLE, ) [Suspect]
  5. FLIXOTIDE (FLUTICASONE PROPIONATE, ) [Suspect]
     Dosage: DF
     Route: 055
  6. GAVISCON (SODIUM ALGINATE/SODIUM BICARONATE, ) [Suspect]
  7. PREDNISOLONE [Suspect]
  8. RAMIPRIL [Suspect]
  9. SPIRIVA [Suspect]
     Indication: CHRONIC OBSTRUCTIVE PULMONARY DISEASE
     Dosage: 18 UG 1X PER 1 DAY
     Route: 055
  10. VENTOLIN [Suspect]
     Dosage: 2.5 MG

REACTIONS (3)
  - CARDIAC FAILURE [None]
  - PANCREATITIS ACUTE [None]
  - PERITONITIS [None]
